FAERS Safety Report 23902572 (Version 1)
Quarter: 2024Q2

REPORT INFORMATION
  Report Type: Spontaneous
  Country: US (occurrence: US)
  Receive Date: 20240527
  Receipt Date: 20240527
  Transmission Date: 20240716
  Serious: No
  Sender: FDA-Public Use
  Company Number: US-ABBVIE-5774658

PATIENT
  Sex: Female

DRUGS (1)
  1. LINZESS [Suspect]
     Active Substance: LINACLOTIDE
     Indication: Product used for unknown indication
     Route: 048

REACTIONS (7)
  - Cardiac disorder [Unknown]
  - Multiple allergies [Unknown]
  - Adverse drug reaction [Unknown]
  - Diarrhoea [Unknown]
  - Muscular weakness [Unknown]
  - Heart rate irregular [Unknown]
  - Palpitations [Unknown]
